FAERS Safety Report 7109283-0 (Version None)
Quarter: 2010Q4

REPORT INFORMATION
  Report Type: 
  Country: None (occurrence: None)
  Receive Date: 20101117
  Receipt Date: 20101103
  Transmission Date: 20110411
  Serious: Yes (Other)
  Sender: FDA-Public Use
  Company Number: US-AMGEN-USASP2010003561

PATIENT

DRUGS (1)
  1. PROCRIT [Suspect]
     Dosage: 40000 UNIT, QWK
     Route: 058
     Dates: start: 20090101, end: 20100630

REACTIONS (1)
  - AORTIC ANEURYSM [None]
